FAERS Safety Report 15851356 (Version 1)
Quarter: 2019Q1

REPORT INFORMATION
  Report Type: Spontaneous
  Country: SE (occurrence: SE)
  Receive Date: 20190122
  Receipt Date: 20190122
  Transmission Date: 20190417
  Serious: Yes (Other)
  Sender: FDA-Public Use
  Company Number: SE-ROCHE-2215325

PATIENT
  Age: 33 Year
  Sex: Female

DRUGS (5)
  1. BETAPRED [Concomitant]
     Active Substance: BETAMETHASONE SODIUM PHOSPHATE
     Dosage: 10 TABLETS A 0,5 MG ONCE
     Route: 048
     Dates: start: 20180207, end: 20180207
  2. PANODIL [Concomitant]
     Active Substance: ACETAMINOPHEN
     Dosage: 2 TABLETS A 500 MG ONCE IN TOTAL
     Route: 048
  3. PREDNISONE. [Concomitant]
     Active Substance: PREDNISONE
     Indication: CUTANEOUS VASCULITIS
  4. CETIRIZIN [Concomitant]
     Active Substance: CETIRIZINE HYDROCHLORIDE
     Dosage: 10 MG ONCE IN TOTAL
     Route: 048
     Dates: start: 20180207, end: 20180218
  5. MABTHERA [Suspect]
     Active Substance: RITUXIMAB
     Indication: MULTIPLE SCLEROSIS
     Dosage: 500 MG ONCE IN TOTAL.
     Route: 042
     Dates: start: 20180207, end: 20180207

REACTIONS (4)
  - Intentional product use issue [Unknown]
  - No adverse event [Unknown]
  - Skin reaction [Recovered/Resolved]
  - Off label use [Unknown]

NARRATIVE: CASE EVENT DATE: 20180221
